FAERS Safety Report 10778198 (Version 6)
Quarter: 2015Q4

REPORT INFORMATION
  Report Type: Spontaneous
  Country: US (occurrence: US)
  Receive Date: 20150209
  Receipt Date: 20151013
  Transmission Date: 20160304
  Serious: Yes (Congenital Anomaly, Other)
  Sender: FDA-Public Use
  Company Number: US-APOTEX-2015AP006354

PATIENT
  Age: 0 Day
  Sex: Male

DRUGS (3)
  1. BENADRYL [Concomitant]
     Active Substance: DIPHENHYDRAMINE HYDROCHLORIDE
     Indication: PRODUCT USED FOR UNKNOWN INDICATION
     Dosage: UNK
     Route: 062
  2. PAXIL [Suspect]
     Active Substance: PAROXETINE HYDROCHLORIDE
     Indication: DEPRESSION
     Dosage: 30 MG, DAILY
     Route: 064
  3. TYLENOL WITH CODEINE [Concomitant]
     Active Substance: ACETAMINOPHEN\CODEINE PHOSPHATE
     Indication: PRODUCT USED FOR UNKNOWN INDICATION
     Route: 064

REACTIONS (9)
  - Petechiae [Unknown]
  - Foetal exposure during pregnancy [Unknown]
  - Asperger^s disorder [Unknown]
  - Obsessive-compulsive disorder [Unknown]
  - Anxiety disorder [Unknown]
  - Autism [Unknown]
  - Talipes [Unknown]
  - Attention deficit/hyperactivity disorder [Unknown]
  - Antisocial behaviour [Unknown]

NARRATIVE: CASE EVENT DATE: 20020728
